FAERS Safety Report 6182350-4 (Version None)
Quarter: 2009Q2

REPORT INFORMATION
  Report Type: 
  Country: None (occurrence: None)
  Receive Date: 20090507
  Receipt Date: 20090428
  Transmission Date: 20091009
  Serious: Yes (Hospitalization, Disabling)
  Sender: FDA-Public Use
  Company Number: PHHO2009KR04836

PATIENT
  Sex: Male
  Weight: 51.6 kg

DRUGS (4)
  1. CERTICAN [Suspect]
     Indication: RENAL TRANSPLANT
     Dosage: 0.15 MG, BID
     Route: 048
     Dates: start: 20090318
  2. AMLODIPINE [Concomitant]
     Indication: HYPERTENSION
  3. DILATREND [Concomitant]
     Indication: HYPERTENSION
  4. TENORMIN [Concomitant]
     Indication: HYPERTENSION

REACTIONS (7)
  - CHEST X-RAY ABNORMAL [None]
  - DYSPNOEA [None]
  - HYPERDYNAMIC LEFT VENTRICLE [None]
  - INSPIRATORY CAPACITY DECREASED [None]
  - PERICARDIAL EFFUSION [None]
  - PNEUMONIA [None]
  - PULMONARY HYPERTENSION [None]
